FAERS Safety Report 20638859 (Version 6)
Quarter: 2022Q3

REPORT INFORMATION
  Report Type: Spontaneous
  Country: US (occurrence: US)
  Receive Date: 20220325
  Receipt Date: 20220816
  Transmission Date: 20221026
  Serious: Yes (Other)
  Sender: FDA-Public Use
  Company Number: US-MALLINCKRODT-T202201299

PATIENT
  Sex: Female
  Weight: 89 kg

DRUGS (4)
  1. H.P. ACTHAR [Suspect]
     Active Substance: CORTICOTROPIN
     Indication: Rheumatoid arthritis
     Dosage: 1 MILLILITER (80 UNITS), TWICE A WEEK
     Route: 058
     Dates: start: 202203, end: 20220421
  2. H.P. ACTHAR [Suspect]
     Active Substance: CORTICOTROPIN
     Indication: Keratitis
     Dosage: UNK, DOSING A HALF SHOT ON THE WEEKENDS
     Route: 065
     Dates: start: 2022, end: 2022
  3. H.P. ACTHAR [Suspect]
     Active Substance: CORTICOTROPIN
     Dosage: UNK, FULLSHOT
     Route: 065
     Dates: start: 2022, end: 2022
  4. H.P. ACTHAR [Suspect]
     Active Substance: CORTICOTROPIN
     Dosage: 1 MILLILITER (80 UNITS), TWICE A WEEK
     Route: 058
     Dates: start: 2022

REACTIONS (10)
  - Rheumatoid arthritis [Not Recovered/Not Resolved]
  - Seizure [Unknown]
  - Blood pressure increased [Unknown]
  - Mobility decreased [Unknown]
  - Feeling abnormal [Unknown]
  - Injection site discolouration [Not Recovered/Not Resolved]
  - Swelling [Not Recovered/Not Resolved]
  - Injection site bruising [Not Recovered/Not Resolved]
  - Therapeutic response shortened [Not Recovered/Not Resolved]
  - Product dose omission issue [Unknown]

NARRATIVE: CASE EVENT DATE: 20220101
